FAERS Safety Report 20735340 (Version 1)
Quarter: 2022Q2

REPORT INFORMATION
  Report Type: Spontaneous
  Country: US (occurrence: None)
  Receive Date: 20220420
  Receipt Date: 20220420
  Transmission Date: 20220721
  Serious: Yes (Hospitalization)
  Sender: FDA-Public Use
  Company Number: None

PATIENT
  Age: 57 Year
  Sex: Male

DRUGS (23)
  1. AMBRISENTAN [Suspect]
     Active Substance: AMBRISENTAN
     Indication: Pulmonary arterial hypertension
     Dosage: FREQUENCY : DAILY;?
     Route: 048
     Dates: start: 20170925
  2. SILDENAFIL [Concomitant]
     Active Substance: SILDENAFIL
  3. Alvesco HFA [Concomitant]
  4. LIDOCAINE VISCOUS SOLN [Concomitant]
  5. CARBAMAZEPINE [Concomitant]
     Active Substance: CARBAMAZEPINE
  6. LEXAPRO [Concomitant]
     Active Substance: ESCITALOPRAM OXALATE
  7. METFORMIN [Concomitant]
     Active Substance: METFORMIN HYDROCHLORIDE
  8. HUMALOG KWIKPEN [Concomitant]
     Active Substance: INSULIN LISPRO
  9. PERIDEX [Concomitant]
     Active Substance: CHLORHEXIDINE GLUCONATE
  10. KEPPRA [Concomitant]
     Active Substance: LEVETIRACETAM
  11. LOVASTATIN [Concomitant]
     Active Substance: LOVASTATIN
  12. LISINOPRIL [Concomitant]
     Active Substance: LISINOPRIL
  13. PANTOPRAZOLE [Concomitant]
     Active Substance: PANTOPRAZOLE
  14. GABAPENTIN [Concomitant]
     Active Substance: GABAPENTIN
  15. INSULIN GLARGINE [Concomitant]
     Active Substance: INSULIN GLARGINE
  16. LASIX [Concomitant]
     Active Substance: FUROSEMIDE
  17. FLONASE [Concomitant]
     Active Substance: FLUTICASONE PROPIONATE
  18. ALBUTEROL SULFATE [Concomitant]
     Active Substance: ALBUTEROL SULFATE
  19. ZYRTEC [Concomitant]
     Active Substance: CETIRIZINE HYDROCHLORIDE
  20. VITAMIN B12 [Concomitant]
     Active Substance: CYANOCOBALAMIN
  21. FERROUS SULFATE [Concomitant]
     Active Substance: FERROUS SULFATE
  22. KRILL OIL [Concomitant]
     Active Substance: DIETARY SUPPLEMENT\KRILL OIL
  23. VITAMIN C [Concomitant]
     Active Substance: ASCORBIC ACID

REACTIONS (4)
  - Urinary tract infection [None]
  - Pneumonia aspiration [None]
  - Dysphagia [None]
  - Oesophageal candidiasis [None]

NARRATIVE: CASE EVENT DATE: 20220324
